FAERS Safety Report 7813084-5 (Version None)
Quarter: 2011Q4

REPORT INFORMATION
  Report Type: 
  Country: None (occurrence: None)
  Receive Date: 20111013
  Receipt Date: 20111011
  Transmission Date: 20120403
  Serious: Yes (Death, Other)
  Sender: FDA-Public Use
  Company Number: PHFR2011GB03295

PATIENT
  Sex: Male

DRUGS (5)
  1. AFINITOR [Suspect]
     Indication: RENAL CELL CARCINOMA
     Dosage: 50 MG, DAILY
     Route: 048
     Dates: start: 20110224, end: 20110323
  2. CYTOKINES AND IMMUNOMODULATORS [Suspect]
     Route: 065
  3. LEVOTHYROXINE SODIUM [Concomitant]
     Indication: HYPOTHYROIDISM
     Route: 048
  4. DEXAMETHASONE [Concomitant]
     Indication: RENAL CELL CARCINOMA
     Dosage: 2 MG, DAILY
     Route: 048
     Dates: start: 20110209
  5. CODEINE LINCTUS [Concomitant]
     Indication: COUGH
     Dosage: 10 ML, DAILY
     Route: 048
     Dates: start: 20110209

REACTIONS (8)
  - METASTASIS [None]
  - DEATH [None]
  - PNEUMONITIS [None]
  - STOMATITIS [None]
  - WEIGHT DECREASED [None]
  - RASH [None]
  - DYSPNOEA [None]
  - DECREASED APPETITE [None]
